FAERS Safety Report 6591075-2 (Version None)
Quarter: 2010Q1

REPORT INFORMATION
  Report Type: 
  Country: None (occurrence: None)
  Receive Date: 20100219
  Receipt Date: 20100216
  Transmission Date: 20100710
  Serious: Yes (Hospitalization, Other)
  Sender: FDA-Public Use
  Company Number: ES-BAYER-201015334GPV

PATIENT
  Age: 32 Year
  Sex: Female
  Weight: 52 kg

DRUGS (5)
  1. ACTIRA [Suspect]
     Indication: BRONCHITIS
     Dosage: UNIT DOSE: 400 MG
     Route: 048
     Dates: start: 20100203, end: 20100209
  2. PARACETAMOL [Concomitant]
     Indication: BRONCHITIS
     Route: 048
     Dates: start: 20100203, end: 20100208
  3. CARBOCISTEINE [Concomitant]
     Indication: BRONCHITIS
     Route: 048
     Dates: start: 20100203, end: 20100204
  4. FLUTOX [Concomitant]
     Indication: BRONCHITIS
     Route: 048
     Dates: start: 20100205, end: 20100208
  5. CLARITHROMYCIN [Concomitant]
     Indication: BRONCHITIS
     Route: 048
     Dates: start: 20100203, end: 20100204

REACTIONS (5)
  - HYPERREFLEXIA [None]
  - JOINT STIFFNESS [None]
  - NUCHAL RIGIDITY [None]
  - OPISTHOTONUS [None]
  - TRISMUS [None]
